FAERS Safety Report 4736340-6 (Version None)
Quarter: 2005Q3

REPORT INFORMATION
  Report Type: 
  Country: None (occurrence: None)
  Receive Date: 20050804
  Receipt Date: 20050726
  Transmission Date: 20060218
  Serious: Yes (Hospitalization)
  Sender: FDA-Public Use
  Company Number: 2005US000987

PATIENT
  Age: 23 Year
  Sex: Female

DRUGS (5)
  1. PROGRAF [Suspect]
     Indication: PROPHYLAXIS AGAINST TRANSPLANT REJECTION
     Dosage: 2.00 MG BID, ORAL
     Route: 048
     Dates: start: 20050218
  2. PROGRAF [Suspect]
     Indication: PROPHYLAXIS AGAINST TRANSPLANT REJECTION
     Dosage: 2.00 MG BID, ORAL
     Route: 048
     Dates: start: 20050318
  3. RAPAMUNE [Concomitant]
  4. PREDNISONE [Concomitant]
  5. PRAVACHOL [Concomitant]

REACTIONS (2)
  - MENINGITIS BACTERIAL [None]
  - MENINGITIS VIRAL [None]
